FAERS Safety Report 5708373-4 (Version None)
Quarter: 2008Q2

REPORT INFORMATION
  Report Type: 
  Country: None (occurrence: None)
  Receive Date: 20080417
  Receipt Date: 20080414
  Transmission Date: 20081010
  Serious: Yes (Other)
  Sender: FDA-Public Use
  Company Number: US-ASTRAZENECA-2008UW07576

PATIENT
  Age: 42 Year
  Sex: Female

DRUGS (1)
  1. SYMBICORT [Suspect]
     Indication: ASTHMA
     Dosage: 160/4.5 UG
     Route: 055

REACTIONS (3)
  - DYSPNOEA [None]
  - PHARYNGEAL OEDEMA [None]
  - THROAT IRRITATION [None]
